FAERS Safety Report 24283838 (Version 1)
Quarter: 2024Q3

REPORT INFORMATION
  Report Type: Spontaneous
  Country: CN (occurrence: CN)
  Receive Date: 20240905
  Receipt Date: 20240905
  Transmission Date: 20241016
  Serious: Yes (Hospitalization, Other)
  Sender: BEIGENE
  Company Number: CN-BEIGENE-BGN-2024-013548

PATIENT

DRUGS (2)
  1. TISLELIZUMAB [Suspect]
     Active Substance: TISLELIZUMAB
     Indication: Squamous cell carcinoma of lung
     Dosage: 200 MILLIGRAM, Q3WK
     Route: 041
     Dates: start: 20240703, end: 20240729
  2. ENDOSTATIN [Concomitant]
     Active Substance: ENDOSTATIN
     Indication: Squamous cell carcinoma of lung
     Dosage: 210 MILLIGRAM
     Route: 041
     Dates: start: 20240704, end: 20240704

REACTIONS (3)
  - Hepatic enzyme increased [Recovering/Resolving]
  - Hypothyroidism [Recovering/Resolving]
  - Blood glucose abnormal [Recovering/Resolving]

NARRATIVE: CASE EVENT DATE: 20240729
